FAERS Safety Report 17966614 (Version 1)
Quarter: 2020Q3

REPORT INFORMATION
  Report Type: Spontaneous
  Country: US (occurrence: US)
  Receive Date: 20200701
  Receipt Date: 20200701
  Transmission Date: 20201103
  Serious: Yes (Other)
  Sender: FDA-Public Use
  Company Number: US-AMGEN-USASP2020101553

PATIENT
  Age: 53 Year
  Sex: Female

DRUGS (5)
  1. CORLANOR [Suspect]
     Active Substance: IVABRADINE HYDROCHLORIDE
     Indication: POSTURAL ORTHOSTATIC TACHYCARDIA SYNDROME
     Dosage: 2.5 MILLIGRAM
     Route: 065
     Dates: start: 201607, end: 2016
  2. CORLANOR [Suspect]
     Active Substance: IVABRADINE HYDROCHLORIDE
     Indication: ARRHYTHMIA
     Dosage: UNK
     Route: 065
     Dates: start: 201609
  3. CORLANOR [Suspect]
     Active Substance: IVABRADINE HYDROCHLORIDE
     Dosage: 5 MILLIGRAM, BID
     Route: 065
  4. CORLANOR [Suspect]
     Active Substance: IVABRADINE HYDROCHLORIDE
     Dosage: 7.5 MILLIGRAM, BID
     Route: 065
  5. CORLANOR [Suspect]
     Active Substance: IVABRADINE HYDROCHLORIDE
     Dosage: UNK, (DOWN THE DOSE)
     Route: 065
     Dates: start: 202001

REACTIONS (9)
  - Chest pain [Unknown]
  - Heart rate increased [Unknown]
  - Implantable cardiac monitor insertion [Unknown]
  - Visual impairment [Recovered/Resolved]
  - Pericarditis [Unknown]
  - Atrial fibrillation [Unknown]
  - Perfume sensitivity [Unknown]
  - Off label use [Unknown]
  - Cardiac ablation [Unknown]

NARRATIVE: CASE EVENT DATE: 2016
